FAERS Safety Report 6378702-X (Version None)
Quarter: 2009Q3

REPORT INFORMATION
  Report Type: 
  Country: None (occurrence: None)
  Receive Date: 20090928
  Receipt Date: 20090914
  Transmission Date: 20100115
  Serious: Yes (Other)
  Sender: FDA-Public Use
  Company Number: CN-ROCHE-657487

PATIENT

DRUGS (11)
  1. TRETINOIN [Suspect]
     Dosage: ON DAY 1; INDUCTION THERAPY
     Route: 048
  2. TRETINOIN [Suspect]
     Dosage: DAY 21-40; CONSOLIDATION THERAPY 4
     Route: 048
  3. DAUNORUBICIN HCL [Suspect]
     Dosage: ON DAY 3- 5; INDUCTION THERAPY
     Route: 042
  4. CYTARABINE [Suspect]
     Dosage: DOSE REPORTED AS 2 G/M2 DAY 1-3. CONSLIDATION THERAPY 1
     Route: 042
  5. CYTARABINE [Suspect]
     Dosage: DOSE REPORTED AS 2 G/M2 DAY 1-3. CONSLIDATION THERAPY 2
     Route: 042
  6. CYTARABINE [Suspect]
     Dosage: DOSE REPORTED AS 2 G/M2 DAY 1-3. CONSLIDATION THERAPY 3
     Route: 042
  7. CYTARABINE [Suspect]
     Dosage: DOSE REPORTED AS 2 G/M2 DAY 1-3. CONSLIDATION THERAPY 4
     Route: 042
  8. MITOXANTRONE [Suspect]
     Dosage: CONSOLIDATION THERAPY 1: ON DAY 1-2
     Route: 042
  9. MITOXANTRONE [Suspect]
     Dosage: CONSOLIDATION THERAPY 2: ON DAY 1-2
     Route: 042
  10. MITOXANTRONE [Suspect]
     Dosage: CONSOLIDATION THERAPY 3: ON DAY 1-2
     Route: 042
  11. MITOXANTRONE [Suspect]
     Dosage: CONSOLIDATION THERAPY 4: ON DAY 1-2
     Route: 042

REACTIONS (1)
  - BACTERIAL SEPSIS [None]
